FAERS Safety Report 7423987-1 (Version None)
Quarter: 2011Q2

REPORT INFORMATION
  Report Type: 
  Country: None (occurrence: None)
  Receive Date: 20110419
  Receipt Date: 20110412
  Transmission Date: 20111010
  Serious: Yes (Other)
  Sender: FDA-Public Use
  Company Number: B0713896A

PATIENT
  Sex: Male

DRUGS (1)
  1. DERMOVATE [Suspect]
     Indication: URTICARIA
     Route: 061

REACTIONS (3)
  - ANAL HAEMORRHAGE [None]
  - PAROSMIA [None]
  - DIZZINESS [None]
